FAERS Safety Report 8095571-0 (Version None)
Quarter: 2012Q1

REPORT INFORMATION
  Report Type: 
  Country: None (occurrence: None)
  Receive Date: 20120131
  Receipt Date: 20120116
  Transmission Date: 20120608
  Serious: Yes (Hospitalization, Other)
  Sender: FDA-Public Use
  Company Number: TW-WATSON-2012-00937

PATIENT
  Age: 56 Year
  Sex: Female

DRUGS (3)
  1. VALPROATE SODIUM [Suspect]
     Indication: DEPRESSION
     Dosage: 500 MG, DAILY
  2. LAMOTRIGINE [Suspect]
     Indication: BIPOLAR I DISORDER
     Dosage: 150 MG, DAILY
  3. QUETIAPINE FUMARATE [Suspect]
     Indication: DEPRESSION
     Dosage: 400 MG, DAILY

REACTIONS (4)
  - DRUG INTERACTION [None]
  - NEUTROPENIA [None]
  - THROMBOCYTOPENIA [None]
  - STEVENS-JOHNSON SYNDROME [None]
